FAERS Safety Report 10024029 (Version 1)
Quarter: 2014Q1

REPORT INFORMATION
  Report Type: Spontaneous
  Country: US (occurrence: US)
  Receive Date: 20140320
  Receipt Date: 20140320
  Transmission Date: 20141002
  Serious: No
  Sender: FDA-Public Use
  Company Number: US-BAYER-2014-041436

PATIENT
  Age: 66 Year
  Sex: Male
  Weight: 83.9 kg

DRUGS (4)
  1. ALEVE CAPLET [Suspect]
     Indication: ANALGESIC THERAPY
     Dosage: 1 DF, BID
     Route: 048
     Dates: start: 20131006, end: 201403
  2. RAMIPRIL [Concomitant]
  3. CRESTOR [Concomitant]
  4. HYDROCHLOROTHIAZIDE [Concomitant]

REACTIONS (1)
  - Incorrect drug administration duration [None]
